FAERS Safety Report 22137651 (Version 2)
Quarter: 2023Q1

REPORT INFORMATION
  Report Type: Report from Study
  Country: US (occurrence: US)
  Receive Date: 20230325
  Receipt Date: 20230329
  Transmission Date: 20230418
  Serious: Yes (Other)
  Sender: FDA-Public Use
  Company Number: US-ABBVIE-4344269

PATIENT
  Age: 79 Year
  Sex: Female

DRUGS (1)
  1. VENCLEXTA [Suspect]
     Active Substance: VENETOCLAX
     Indication: Acute myeloid leukaemia
     Route: 048
     Dates: start: 202303

REACTIONS (5)
  - Mouth haemorrhage [Unknown]
  - Epistaxis [Unknown]
  - Oral fungal infection [Recovered/Resolved]
  - Platelet count decreased [Unknown]
  - Ear pain [Recovered/Resolved]

NARRATIVE: CASE EVENT DATE: 20230301
